FAERS Safety Report 7435486-1 (Version None)
Quarter: 2011Q2

REPORT INFORMATION
  Report Type: 
  Country: None (occurrence: None)
  Receive Date: 20110418
  Receipt Date: 20110404
  Transmission Date: 20111010
  Serious: Yes (Other)
  Sender: FDA-Public Use
  Company Number: 030671

PATIENT
  Sex: Male

DRUGS (5)
  1. TAMSULOSINE HCL A [Concomitant]
  2. KEPPRA [Suspect]
     Dosage: 750 MG BID ORAL
     Route: 048
     Dates: start: 20100101
  3. TEMODAL [Suspect]
     Indication: GLIOBLASTOMA
  4. XATRAL /00975301/ [Concomitant]
  5. GLUCOCORTICOIDS [Concomitant]

REACTIONS (4)
  - TRANSAMINASES INCREASED [None]
  - ASPARTATE AMINOTRANSFERASE INCREASED [None]
  - ALANINE AMINOTRANSFERASE INCREASED [None]
  - STEATORRHOEA [None]
